FAERS Safety Report 24813135 (Version 1)
Quarter: 2025Q1

REPORT INFORMATION
  Report Type: Report from Study
  Country: US (occurrence: US)
  Receive Date: 20250107
  Receipt Date: 20250107
  Transmission Date: 20250409
  Serious: Yes (Other)
  Sender: AMGEN
  Company Number: US-AMGEN-USASL2024178639

PATIENT
  Age: 70 Year
  Sex: Female

DRUGS (2)
  1. TEPEZZA [Suspect]
     Active Substance: TEPROTUMUMAB-TRBW
     Indication: Toxic goitre
     Dosage: UNK, Q3WK, FIRST INFUSION (FOR EIGHT TOTAL TREATMENTS)
     Route: 042
     Dates: start: 20240815
  2. TEPEZZA [Suspect]
     Active Substance: TEPROTUMUMAB-TRBW
     Dosage: UNK, Q3WK, SECOND INFUSION
     Route: 042
     Dates: start: 20240905

REACTIONS (2)
  - Diabetes mellitus [Unknown]
  - Dyspepsia [Unknown]

NARRATIVE: CASE EVENT DATE: 20240101
